FAERS Safety Report 18438317 (Version 1)
Quarter: 2020Q4

REPORT INFORMATION
  Report Type: Spontaneous
  Country: US (occurrence: US)
  Receive Date: 20201028
  Receipt Date: 20201028
  Transmission Date: 20210114
  Serious: No
  Sender: FDA-Public Use
  Company Number: US-ROCHE-2582550

PATIENT
  Sex: Male

DRUGS (2)
  1. ZELBORAF [Suspect]
     Active Substance: VEMURAFENIB
     Indication: BRONCHIAL CARCINOMA
     Route: 048
     Dates: start: 20200221
  2. COTELLIC [Suspect]
     Active Substance: COBIMETINIB
     Indication: BRONCHIAL CARCINOMA
     Route: 048
     Dates: start: 20200220

REACTIONS (4)
  - Intentional product use issue [Unknown]
  - Off label use [Unknown]
  - Nausea [Unknown]
  - Vomiting [Unknown]
